FAERS Safety Report 10223247 (Version 2)
Quarter: 2014Q2

REPORT INFORMATION
  Report Type: Spontaneous
  Country: CA (occurrence: CA)
  Receive Date: 20140609
  Receipt Date: 20140623
  Transmission Date: 20141212
  Serious: Yes (Hospitalization)
  Sender: FDA-Public Use
  Company Number: CA-BRISTOL-MYERS SQUIBB COMPANY-20882833

PATIENT
  Age: 56 Year
  Sex: Female

DRUGS (2)
  1. ELIQUIS [Suspect]
     Route: 048
     Dates: start: 20140422, end: 20140522
  2. LACTAID [Suspect]
     Indication: LACTOSE INTOLERANCE

REACTIONS (1)
  - Pancreatitis acute [Recovered/Resolved]
